FAERS Safety Report 5917713-2 (Version None)
Quarter: 2008Q4

REPORT INFORMATION
  Report Type: 
  Country: None (occurrence: None)
  Receive Date: 20081009
  Receipt Date: 20080925
  Transmission Date: 20090506
  Serious: Yes (Other)
  Sender: FDA-Public Use
  Company Number: 08-001567

PATIENT
  Age: 56 Year
  Sex: Female

DRUGS (6)
  1. TACLONEX [Suspect]
     Indication: PSORIASIS
     Dosage: 28571 MG, QD, TOPICAL
     Route: 061
     Dates: end: 20080128
  2. HUMIRA [Suspect]
     Indication: PSORIASIS
     Dosage: SEE IMAGE
     Route: 058
     Dates: start: 20080128, end: 20080317
  3. HUMIRA [Suspect]
     Indication: PSORIASIS
     Dosage: SEE IMAGE
     Route: 058
     Dates: start: 20080515
  4. METHOTREXATE [Concomitant]
  5. ACETYLSALICYLIC ACID SRT [Concomitant]
  6. RIFAMPICIN [Concomitant]

REACTIONS (1)
  - MALIGNANT MELANOMA [None]
